FAERS Safety Report 15397415 (Version 3)
Quarter: 2019Q1

REPORT INFORMATION
  Report Type: Spontaneous
  Country: US (occurrence: US)
  Receive Date: 20180918
  Receipt Date: 20190114
  Transmission Date: 20190417
  Serious: Yes (Hospitalization, Other)
  Sender: FDA-Public Use
  Company Number: US-DSJP-DSU-2016-116473

PATIENT

DRUGS (4)
  1. BENICAR [Suspect]
     Active Substance: OLMESARTAN MEDOXOMIL
     Indication: PRODUCT USED FOR UNKNOWN INDICATION
     Dosage: 40 MG, QD
     Route: 048
     Dates: start: 20150830
  2. TRIBENZOR [Suspect]
     Active Substance: AMLODIPINE BESYLATE\HYDROCHLOROTHIAZIDE\OLMESARTAN MEDOXOMIL
     Dosage: 40/10/25 MG, QD
     Route: 048
  3. AZOR [Suspect]
     Active Substance: AMLODIPINE BESYLATE\OLMESARTAN MEDOXOMIL
     Indication: HYPERTENSION
     Dosage: 10/40 MG, UNK
     Dates: start: 201509, end: 201510
  4. TRIBENZOR [Suspect]
     Active Substance: AMLODIPINE BESYLATE\HYDROCHLOROTHIAZIDE\OLMESARTAN MEDOXOMIL
     Indication: HYPERTENSION
     Dosage: 10/10/25 MG, QD
     Route: 048
     Dates: start: 20150313, end: 201509

REACTIONS (10)
  - Hypotension [Unknown]
  - Diverticulum [Unknown]
  - Acute kidney injury [Not Recovered/Not Resolved]
  - Back pain [Unknown]
  - Vision blurred [Unknown]
  - Sprue-like enteropathy [Unknown]
  - Gastrooesophageal reflux disease [Unknown]
  - Depression [Not Recovered/Not Resolved]
  - Dyspnoea [Unknown]
  - Constipation [Not Recovered/Not Resolved]

NARRATIVE: CASE EVENT DATE: 2015
